FAERS Safety Report 7437723-6 (Version None)
Quarter: 2011Q2

REPORT INFORMATION
  Report Type: 
  Country: None (occurrence: None)
  Receive Date: 20110426
  Receipt Date: 20110425
  Transmission Date: 20111010
  Serious: No
  Sender: FDA-Public Use
  Company Number: US-ROXANE LABORATORIES, INC.-2011-RO-00571RO

PATIENT
  Age: 63 Year
  Sex: Female

DRUGS (2)
  1. CODEINE SUL TAB [Suspect]
  2. ASPIRIN [Concomitant]

REACTIONS (1)
  - DYSPNOEA [None]
